FAERS Safety Report 8366146-0 (Version None)
Quarter: 2012Q2

REPORT INFORMATION
  Report Type: 
  Country: None (occurrence: None)
  Receive Date: 20120516
  Receipt Date: 20120516
  Transmission Date: 20120825
  Serious: Yes (Other)
  Sender: FDA-Public Use
  Company Number: None

PATIENT
  Age: 46 Year
  Sex: Female
  Weight: 95.709 kg

DRUGS (1)
  1. OXCARBAZEPINE [Suspect]
     Indication: BIPOLAR I DISORDER
     Dosage: 300MG BID PO
     Route: 048
     Dates: start: 20120315, end: 20120329

REACTIONS (2)
  - STEVENS-JOHNSON SYNDROME [None]
  - INFLUENZA LIKE ILLNESS [None]
